FAERS Safety Report 20869358 (Version 1)
Quarter: 2022Q2

REPORT INFORMATION
  Report Type: Other
  Country: ES (occurrence: None)
  Receive Date: 20220524
  Receipt Date: 20220524
  Transmission Date: 20220721
  Serious: Yes (Hospitalization)
  Sender: FDA-Public Use
  Company Number: ES-ROCHE-3099880

PATIENT
  Age: 47 Year
  Sex: Male

DRUGS (8)
  1. RITUXIMAB [Suspect]
     Active Substance: RITUXIMAB
     Indication: B-cell lymphoma
     Route: 042
     Dates: start: 202004, end: 202008
  2. RITUXIMAB [Suspect]
     Active Substance: RITUXIMAB
     Dosage: MAINTENANCE TREATMENT WITH RITUXIMAB
     Route: 042
     Dates: start: 202010
  3. RITUXIMAB [Suspect]
     Active Substance: RITUXIMAB
     Dosage: 5TH DOSE
     Route: 042
     Dates: start: 20210527
  4. RITUXIMAB [Suspect]
     Active Substance: RITUXIMAB
     Route: 042
     Dates: start: 20211001
  5. TOCILIZUMAB [Suspect]
     Active Substance: TOCILIZUMAB
     Indication: COVID-19
     Dosage: TWO DOSES OF TOCILIZUMAB WERE ADMINISTERED
     Route: 065
     Dates: start: 20210729
  6. ELASOMERAN [Suspect]
     Active Substance: ELASOMERAN
     Indication: COVID-19 prophylaxis
     Route: 065
     Dates: start: 20210505
  7. ELASOMERAN [Suspect]
     Active Substance: ELASOMERAN
     Route: 065
     Dates: start: 20210601
  8. ELASOMERAN [Suspect]
     Active Substance: ELASOMERAN
     Route: 065
     Dates: start: 20211123

REACTIONS (5)
  - COVID-19 [Recovered/Resolved]
  - Hypogammaglobulinaemia [Unknown]
  - Drug interaction [Unknown]
  - Vaccination failure [Unknown]
  - Off label use [Unknown]

NARRATIVE: CASE EVENT DATE: 20210701
